FAERS Safety Report 8073548-9 (Version None)
Quarter: 2012Q1

REPORT INFORMATION
  Report Type: 
  Country: None (occurrence: None)
  Receive Date: 20120126
  Receipt Date: 20120112
  Transmission Date: 20120608
  Serious: Yes (Hospitalization, Other)
  Sender: FDA-Public Use
  Company Number: DE-UCBSA-044667

PATIENT
  Age: 33 Year
  Sex: Male
  Weight: 115 kg

DRUGS (10)
  1. VALPROATE SODIUM [Concomitant]
     Dosage: REDUCED BY 800 MG/DAY
  2. BENALAPRIL [Concomitant]
     Indication: HYPERTENSION
     Dosage: 20-0-20, TATAL DAILY DOSE: 40
     Route: 048
  3. VIMPAT [Suspect]
     Indication: EPILEPSY
     Dates: start: 20110401, end: 20120101
  4. KEPPRA [Suspect]
     Indication: CONVULSION
     Dosage: SINGLE DOSE : 500 (2 SINGLE DOSES PER DAY), TOTAL DAILY DOSE  : 1000
     Route: 048
  5. JUICE PLUS [Concomitant]
     Indication: BRONCHITIS
  6. JUICE PLUS [Concomitant]
     Indication: SKIN DISORDER
  7. VALPROATE SODIUM [Concomitant]
     Indication: EPILEPSY
  8. VIMPAT [Suspect]
     Dosage: SINGLE DOSE : 100, TOTAL DAILY DOSE :200
     Route: 048
     Dates: start: 20110301, end: 20110101
  9. VALPROATE SODIUM [Concomitant]
     Dosage: 600-0-600, TOTAL DAILY DOSE: 1200
     Route: 048
  10. VALPROATE SODIUM [Concomitant]
     Dosage: 300-300-300-300, TOTAL DAILY DOSE: 1200

REACTIONS (19)
  - FUNGAL INFECTION [None]
  - DRY EYE [None]
  - SKIN HYPOPLASIA [None]
  - BLOOD PRESSURE INCREASED [None]
  - ERYTHEMA [None]
  - PRURITUS [None]
  - AGGRESSION [None]
  - RASH [None]
  - ECZEMA [None]
  - ABDOMINAL WALL DISORDER [None]
  - THERAPEUTIC RESPONSE DECREASED [None]
  - RASH PRURITIC [None]
  - SWELLING FACE [None]
  - OCULAR HYPERAEMIA [None]
  - HAIR GROWTH ABNORMAL [None]
  - WEIGHT INCREASED [None]
  - BRONCHITIS [None]
  - HEART RATE INCREASED [None]
  - EYE INFLAMMATION [None]
